FAERS Safety Report 7114441-5 (Version None)
Quarter: 2010Q4

REPORT INFORMATION
  Report Type: 
  Country: None (occurrence: None)
  Receive Date: 20101119
  Receipt Date: 20101105
  Transmission Date: 20110411
  Serious: Yes (Other)
  Sender: FDA-Public Use
  Company Number: FR-ELI_LILLY_AND_COMPANY-FR201011001836

PATIENT
  Age: 55 Year
  Sex: Male

DRUGS (2)
  1. PROZAC [Suspect]
     Indication: BIPOLAR DISORDER
     Dosage: 20 MG, DAILY (1/D)
     Route: 048
     Dates: start: 20100501
  2. DEPAMIDE [Concomitant]
     Indication: BIPOLAR DISORDER
     Dosage: UNK, 3/D
     Route: 048
     Dates: start: 20100501

REACTIONS (4)
  - DISSOCIATIVE AMNESIA [None]
  - DISSOCIATIVE DISORDER [None]
  - HOMICIDE [None]
  - OFF LABEL USE [None]
